FAERS Safety Report 18711996 (Version 1)
Quarter: 2021Q1

REPORT INFORMATION
  Report Type: Spontaneous
  Country: US (occurrence: US)
  Receive Date: 20210107
  Receipt Date: 20210107
  Transmission Date: 20210419
  Serious: No
  Sender: FDA-Public Use
  Company Number: US-SA-2021SA003213

PATIENT

DRUGS (1)
  1. DUPIXENT [Suspect]
     Active Substance: DUPILUMAB
     Indication: DERMATITIS ATOPIC
     Dosage: 300 MG, QOW
     Route: 058
     Dates: start: 20201217

REACTIONS (9)
  - Paraesthesia [Unknown]
  - Skin disorder [Unknown]
  - Condition aggravated [Unknown]
  - Dry mouth [Unknown]
  - Body tinea [Unknown]
  - Skin exfoliation [Unknown]
  - Asthenia [Unknown]
  - Decreased appetite [Unknown]
  - Chest pain [Unknown]

NARRATIVE: CASE EVENT DATE: 202012
